FAERS Safety Report 8235360-7 (Version None)
Quarter: 2012Q1

REPORT INFORMATION
  Report Type: 
  Country: None (occurrence: None)
  Receive Date: 20120322
  Receipt Date: 20120308
  Transmission Date: 20120608
  Serious: Yes (Other)
  Sender: FDA-Public Use
  Company Number: 2012P1009305

PATIENT
  Sex: Female

DRUGS (1)
  1. FENTANYL-50 [Suspect]
     Indication: PAIN
     Dosage: 1 PATCH; QID; TDER
     Route: 062
     Dates: start: 20120201

REACTIONS (2)
  - SOMNOLENCE [None]
  - CONFUSIONAL STATE [None]
